FAERS Safety Report 8618240-4 (Version None)
Quarter: 2012Q3

REPORT INFORMATION
  Report Type: 
  Country: None (occurrence: None)
  Receive Date: 20120824
  Receipt Date: 20120815
  Transmission Date: 20120928
  Serious: No
  Sender: FDA-Public Use
  Company Number: AR-AMGEN-ARGSP2012050400

PATIENT
  Age: 68 Year
  Sex: Female

DRUGS (3)
  1. ENBREL [Suspect]
     Dosage: 25 MG EVERY 10 DAYS
     Dates: start: 20110101
  2. HYDROXYCHLOROQUINE SULFATE [Concomitant]
     Dosage: UNK
  3. ENBREL [Suspect]
     Indication: RHEUMATOID ARTHRITIS
     Dosage: 25 MG, 2X/WEEK
     Dates: start: 20040226

REACTIONS (2)
  - ARTHRALGIA [None]
  - ARTHRITIS [None]
